FAERS Safety Report 17964670 (Version 1)
Quarter: 2020Q2

REPORT INFORMATION
  Report Type: Spontaneous
  Country: US (occurrence: US)
  Receive Date: 20200630
  Receipt Date: 20200630
  Transmission Date: 20200714
  Serious: No
  Sender: FDA-Public Use
  Company Number: US-ASTRAZENECA-2020SE81824

PATIENT
  Sex: Female

DRUGS (1)
  1. NEXIUM [Suspect]
     Active Substance: ESOMEPRAZOLE MAGNESIUM
     Indication: GASTROOESOPHAGEAL REFLUX DISEASE
     Dosage: 40 MG DAILY ON AN EMPTY STOMACH
     Route: 048

REACTIONS (4)
  - Dyspepsia [Unknown]
  - Blood magnesium decreased [Unknown]
  - Vitamin B12 decreased [Unknown]
  - Laboratory test abnormal [Unknown]
